FAERS Safety Report 7341050 (Version 3)
Quarter: 2014Q2

REPORT INFORMATION
  Report Type: Spontaneous
  Country: US (occurrence: US)
  Receive Date: 20100401
  Receipt Date: 20140401
  Transmission Date: 20141212
  Serious: Yes (Other)
  Sender: FDA-Public Use
  Company Number: US-ALEXION-A201000345

PATIENT
  Age: 31 Year
  Sex: Female

DRUGS (5)
  1. SOLIRIS 300MG [Suspect]
     Indication: PAROXYSMAL NOCTURNAL HAEMOGLOBINURIA
     Dosage: 600 MG, QW
     Route: 042
     Dates: start: 20071026, end: 20071123
  2. SOLIRIS 300MG [Suspect]
     Dosage: 900 MG, Q2W
     Route: 042
     Dates: start: 20071207
  3. MACROBID                           /00024401/ [Suspect]
     Indication: URINARY TRACT INFECTION
     Dosage: UNK
     Route: 048
     Dates: start: 201003, end: 201003
  4. AMBIEN [Concomitant]
  5. DILAUDID [Suspect]

REACTIONS (3)
  - Hypersensitivity [Not Recovered/Not Resolved]
  - Urinary tract infection [Unknown]
  - Mucosal infection [Unknown]
